FAERS Safety Report 7954604-X (Version None)
Quarter: 2011Q4

REPORT INFORMATION
  Report Type: 
  Country: None (occurrence: None)
  Receive Date: 20111202
  Receipt Date: 20111124
  Transmission Date: 20120403
  Serious: Yes (Hospitalization, Other)
  Sender: FDA-Public Use
  Company Number: PHHY2011PL103048

PATIENT
  Sex: Female
  Weight: 67 kg

DRUGS (3)
  1. SANDOSTATIN LAR [Suspect]
     Indication: PANCREATIC NEUROENDOCRINE TUMOUR
     Dosage: 20 MG 1 X MONTH
     Route: 030
     Dates: start: 20110101, end: 20110301
  2. HUMULIN R [Concomitant]
     Dosage: 10 IU,
     Route: 058
  3. LEVOTHYROXINE SODIUM [Concomitant]
     Dosage: 25 UG,
     Route: 048

REACTIONS (6)
  - SENSORY LOSS [None]
  - DYSPHAGIA [None]
  - MUSCLE CONTRACTIONS INVOLUNTARY [None]
  - POLYNEUROPATHY [None]
  - MUSCLE ATROPHY [None]
  - TREMOR [None]
